FAERS Safety Report 10762321 (Version 1)
Quarter: 2015Q1

REPORT INFORMATION
  Report Type: Report from Study
  Country: US (occurrence: US)
  Receive Date: 20150204
  Receipt Date: 20150204
  Transmission Date: 20150721
  Serious: Yes (Other)
  Sender: FDA-Public Use
  Company Number: US-009507513-1501USA010494

PATIENT
  Age: 73 Year

DRUGS (3)
  1. VINCRISTINE SULFATE. [Suspect]
     Active Substance: VINCRISTINE SULFATE
     Indication: PLASMA CELL MYELOMA
     Dosage: 1.5 MG, EVERY 4 WEEKS, STRENGTH: 1MG/ML
     Route: 042
     Dates: start: 20140826, end: 20140923
  2. DECADRON [Suspect]
     Active Substance: DEXAMETHASONE
     Indication: PLASMA CELL MYELOMA
     Dosage: 4 MG, 4 DAYS ON AND 4 DAYS OFF, DURATION 2 MONTHS
     Route: 048
     Dates: start: 20140826
  3. DOXORUBICIN [Suspect]
     Active Substance: DOXORUBICIN
     Indication: PLASMA CELL MYELOMA
     Dosage: 40 MG/M2, EVERY 4 WEEKS
     Route: 042
     Dates: start: 20140826, end: 20140923

REACTIONS (1)
  - Pyrexia [Recovered/Resolved]

NARRATIVE: CASE EVENT DATE: 20141110
